FAERS Safety Report 13424942 (Version 2)
Quarter: 2020Q2

REPORT INFORMATION
  Report Type: Report from Study
  Country: US (occurrence: US)
  Receive Date: 20170410
  Receipt Date: 20200603
  Transmission Date: 20200713
  Serious: Yes (Other)
  Sender: FDA-Public Use
  Company Number: US-ALLERGAN-1713616US

PATIENT
  Sex: Female

DRUGS (4)
  1. CARIPRAZINE HCL 6MG CAP (TBD) [Suspect]
     Active Substance: CARIPRAZINE HYDROCHLORIDE
     Dosage: 2 DF, QD
  2. CARIPRAZINE HCL 6MG CAP (TBD) [Suspect]
     Active Substance: CARIPRAZINE HYDROCHLORIDE
     Dosage: 6 MG, TID
  3. CARIPRAZINE HCL 6MG CAP (TBD) [Suspect]
     Active Substance: CARIPRAZINE HYDROCHLORIDE
     Dosage: 6 MG. 5 PILLS
  4. CARIPRAZINE HCL 6MG CAP (TBD) [Suspect]
     Active Substance: CARIPRAZINE HYDROCHLORIDE
     Indication: DEPRESSION
     Dosage: 3 DF, QD

REACTIONS (4)
  - Hallucination, auditory [Unknown]
  - Incorrect dose administered [Unknown]
  - Drug ineffective [Unknown]
  - Intentional product misuse [Unknown]
